FAERS Safety Report 10024477 (Version 2)
Quarter: 2017Q2

REPORT INFORMATION
  Report Type: Spontaneous
  Country: US (occurrence: US)
  Receive Date: 20140320
  Receipt Date: 20170418
  Transmission Date: 20170829
  Serious: Yes (Hospitalization, Other)
  Sender: FDA-Public Use
  Company Number: US-PFIZER INC-2014073536

PATIENT
  Age: 38 Year
  Sex: Female

DRUGS (3)
  1. LIPITOR [Suspect]
     Active Substance: ATORVASTATIN CALCIUM
     Indication: CARDIOVASCULAR EVENT PROPHYLAXIS
  2. LIPITOR [Suspect]
     Active Substance: ATORVASTATIN CALCIUM
     Indication: BLOOD CHOLESTEROL INCREASED
  3. LIPITOR [Suspect]
     Active Substance: ATORVASTATIN CALCIUM
     Indication: LOW DENSITY LIPOPROTEIN INCREASED
     Dosage: 10 MG, UNK
     Route: 048
     Dates: start: 2002

REACTIONS (19)
  - Pancreatitis acute [Recovering/Resolving]
  - Eating disorder [Recovering/Resolving]
  - Functional gastrointestinal disorder [Unknown]
  - Anxiety [Unknown]
  - Stress [Unknown]
  - Mental disorder [Unknown]
  - Decreased appetite [Unknown]
  - Vitreous floaters [Unknown]
  - Diabetic neuropathy [Unknown]
  - Abdominal pain upper [Unknown]
  - Hypertension [Unknown]
  - Muscle atrophy [Unknown]
  - Diarrhoea [Unknown]
  - Fear [Unknown]
  - Type 2 diabetes mellitus [Unknown]
  - Asthenia [Unknown]
  - Paraesthesia [Unknown]
  - Vision blurred [Unknown]
  - Onychomadesis [Unknown]

NARRATIVE: CASE EVENT DATE: 2002
